FAERS Safety Report 4343697-7 (Version None)
Quarter: 2004Q2

REPORT INFORMATION
  Report Type: 
  Country: None (occurrence: None)
  Receive Date: 20040419
  Receipt Date: 20040401
  Transmission Date: 20050107
  Serious: Yes (Disabling, Other)
  Sender: FDA-Public Use
  Company Number: 2004S1001030

PATIENT
  Sex: Female

DRUGS (1)
  1. MAXZIDE [Suspect]
     Indication: HYPERTENSION
     Dosage: HALF TABLET QD, ORAL
     Route: 048
     Dates: start: 19970301, end: 20021001

REACTIONS (4)
  - ANXIETY [None]
  - BLOOD DISORDER [None]
  - ERYTHEMA [None]
  - SKIN DISCOLOURATION [None]
